FAERS Safety Report 8878121 (Version 1)
Quarter: 2012Q4

REPORT INFORMATION
  Report Type: 
  Country: US (occurrence: US)
  Receive Date: 20121025
  Receipt Date: 20121025
  Transmission Date: 20130627
  Serious: No
  Sender: FDA-Public Use
  Company Number: US-AMGEN-USASP2012021460

PATIENT
  Age: 43 Year
  Sex: Female
  Weight: 49.89 kg

DRUGS (11)
  1. ENBREL [Suspect]
     Indication: PSORIATIC ARTHROPATHY
     Dosage: 50 mg, qwk
     Route: 058
  2. IBUPROFEN [Concomitant]
     Dosage: UNK
     Route: 048
  3. LASIX                              /00032601/ [Concomitant]
     Dosage: 20 mg, UNK
     Route: 048
  4. TOPAMAX [Concomitant]
     Dosage: 100 mg, UNK
     Route: 048
  5. VICODIN [Concomitant]
     Dosage: UNK
     Route: 048
  6. SYNTHROID [Concomitant]
     Dosage: 100 mug, UNK
     Route: 048
  7. DOXYCYCLINE [Concomitant]
     Dosage: 150 mg, UNK
     Route: 048
  8. WELLBUTRIN [Concomitant]
     Dosage: 100 mg, UNK
     Route: 048
  9. PRILOSEC                           /00661201/ [Concomitant]
     Dosage: 20 mg, UNK
     Route: 048
  10. VITAMIN B-12 [Concomitant]
     Dosage: 1000 mug, UNK
  11. MULTI TABS [Concomitant]
     Dosage: UNK
     Route: 048

REACTIONS (2)
  - Vaginal abscess [Unknown]
  - Cellulitis [Unknown]
